FAERS Safety Report 4691458-1 (Version None)
Quarter: 2005Q2

REPORT INFORMATION
  Report Type: 
  Country: None (occurrence: None)
  Receive Date: 20050613
  Receipt Date: 20050419
  Transmission Date: 20051028
  Serious: Yes (Other)
  Sender: FDA-Public Use
  Company Number: S04-USA-02747-01

PATIENT
  Age: 23 Year
  Sex: Female

DRUGS (4)
  1. LEXAPRO [Suspect]
     Indication: DEPRESSION
     Dosage: 5 MG QD PO
     Route: 048
     Dates: start: 20040423, end: 20040427
  2. FOLIC ACID [Concomitant]
  3. THIAMINE [Concomitant]
  4. MULTI-VITAMIN [Concomitant]

REACTIONS (10)
  - DEREALISATION [None]
  - DISTURBANCE IN ATTENTION [None]
  - DYSTONIA [None]
  - HEADACHE [None]
  - HEART RATE INCREASED [None]
  - HYPERSENSITIVITY [None]
  - HYPERTENSION [None]
  - MONOCYTE COUNT INCREASED [None]
  - NIGHTMARE [None]
  - VISION BLURRED [None]
